FAERS Safety Report 12197816 (Version 1)
Quarter: 2016Q1

REPORT INFORMATION
  Report Type: Spontaneous
  Country: US (occurrence: US)
  Receive Date: 20160322
  Receipt Date: 20160322
  Transmission Date: 20160526
  Serious: No
  Sender: FDA-Public Use
  Company Number: US-JNJFOC-20160223052

PATIENT
  Age: 10 Year
  Sex: Male

DRUGS (1)
  1. RISPERDAL [Suspect]
     Active Substance: RISPERIDONE
     Indication: PRODUCT USED FOR UNKNOWN INDICATION
     Dosage: SINCE 7 YEARS
     Route: 048
     Dates: end: 20160226

REACTIONS (2)
  - Gynaecomastia [Not Recovered/Not Resolved]
  - Breast discharge [Not Recovered/Not Resolved]
